FAERS Safety Report 4987869-7 (Version None)
Quarter: 2006Q2

REPORT INFORMATION
  Report Type: 
  Country: None (occurrence: None)
  Receive Date: 20060427
  Receipt Date: 20060427
  Transmission Date: 20061013
  Serious: Yes (Other)
  Sender: FDA-Public Use
  Company Number: None

PATIENT
  Sex: Female
  Weight: 79.3795 kg

DRUGS (1)
  1. TAXOTERE [Suspect]
     Indication: BREAST CANCER
     Dosage: 140 MG Q 2 WEEKS IV
     Route: 042
     Dates: start: 20050623

REACTIONS (3)
  - CATHETER RELATED COMPLICATION [None]
  - OEDEMA PERIPHERAL [None]
  - ULTRASOUND DOPPLER ABNORMAL [None]
